FAERS Safety Report 11626072 (Version 7)
Quarter: 2017Q2

REPORT INFORMATION
  Report Type: Spontaneous
  Country: US (occurrence: US)
  Receive Date: 20151013
  Receipt Date: 20170626
  Transmission Date: 20170829
  Serious: Yes (Hospitalization, Disabling, Other)
  Sender: FDA-Public Use
  Company Number: US-009507513-1510USA006174

PATIENT
  Sex: Female

DRUGS (6)
  1. FOSAMAX [Suspect]
     Active Substance: ALENDRONATE SODIUM
     Indication: OSTEOPOROSIS
     Dosage: 10 MG, UNKNOWN
     Route: 048
     Dates: start: 19990726, end: 20020501
  2. FOSAMAX [Suspect]
     Active Substance: ALENDRONATE SODIUM
     Dosage: 70 MG, QW
     Route: 048
     Dates: end: 20140707
  3. FOSAMAX PLUS D [Suspect]
     Active Substance: ALENDRONATE SODIUM\CHOLECALCIFEROL
     Indication: OSTEOPOROSIS
     Dosage: UNK, UNKNOWN
     Route: 048
     Dates: start: 20070328, end: 20080918
  4. ALENDRONATE SODIUM. [Suspect]
     Active Substance: ALENDRONATE SODIUM
     Dosage: 70 MG, UNKNOWN
     Route: 048
     Dates: start: 20120414, end: 20130818
  5. ALENDRONATE SODIUM. [Suspect]
     Active Substance: ALENDRONATE SODIUM
     Indication: OSTEOPOROSIS
     Dosage: 70 MG, UNKNOWN
     Route: 048
     Dates: start: 20081218, end: 20120119
  6. FOSAMAX [Suspect]
     Active Substance: ALENDRONATE SODIUM
     Dosage: 70 MG, QW
     Route: 048
     Dates: start: 20010827, end: 20061229

REACTIONS (18)
  - Low turnover osteopathy [Unknown]
  - Ankle operation [Unknown]
  - Osteoporosis [Unknown]
  - Hypothyroidism [Unknown]
  - Bone lesion [Unknown]
  - Endodontic procedure [Recovered/Resolved]
  - Cough [Unknown]
  - Hyperkalaemia [Unknown]
  - Osteoarthritis [Unknown]
  - Hyponatraemia [Unknown]
  - Tonsillectomy [Unknown]
  - Appendicectomy [Unknown]
  - Blood cholesterol increased [Recovered/Resolved]
  - Hyperlipidaemia [Unknown]
  - Anaemia postoperative [Unknown]
  - Femur fracture [Recovered/Resolved]
  - Impaired healing [Unknown]
  - Neoplasm malignant [Unknown]

NARRATIVE: CASE EVENT DATE: 2001
